FAERS Safety Report 7945253-8 (Version None)
Quarter: 2011Q4

REPORT INFORMATION
  Report Type: 
  Country: None (occurrence: None)
  Receive Date: 20111129
  Receipt Date: 20110919
  Transmission Date: 20120403
  Serious: No
  Sender: FDA-Public Use
  Company Number: US-GLAXOSMITHKLINE-A0945161A

PATIENT
  Age: 46 Year
  Sex: Female

DRUGS (2)
  1. FLOVENT [Suspect]
     Indication: CHRONIC OBSTRUCTIVE PULMONARY DISEASE
     Dosage: 1PUFF TWICE PER DAY
     Route: 055
     Dates: start: 20110501
  2. COMBIVENT [Concomitant]

REACTIONS (4)
  - CHEST DISCOMFORT [None]
  - SPUTUM RETENTION [None]
  - ILL-DEFINED DISORDER [None]
  - VIRAL INFECTION [None]
